FAERS Safety Report 11893590 (Version 5)
Quarter: 2016Q1

REPORT INFORMATION
  Report Type: Spontaneous
  Country: US (occurrence: US)
  Receive Date: 20160106
  Receipt Date: 20160329
  Transmission Date: 20160526
  Serious: Yes (Hospitalization)
  Sender: FDA-Public Use
  Company Number: US-ACTELION PHARMACEUTICALS US, INC.-A-US2015-127621

PATIENT
  Age: 55 Year
  Sex: Female

DRUGS (2)
  1. REMODULIN [Concomitant]
     Active Substance: TREPROSTINIL
  2. OPSUMIT [Suspect]
     Active Substance: MACITENTAN
     Indication: PULMONARY HYPERTENSION
     Dosage: 10 MG, QD
     Route: 048
     Dates: start: 20151022

REACTIONS (13)
  - Cough [Unknown]
  - Infusion site warmth [Unknown]
  - Infusion site erythema [Not Recovered/Not Resolved]
  - Secretion discharge [Unknown]
  - Weight decreased [Unknown]
  - Infusion site pain [Unknown]
  - Concussion [Unknown]
  - Dyspnoea [Unknown]
  - Fall [Unknown]
  - Chest pain [Unknown]
  - Dyspnoea exertional [Unknown]
  - Blood glucose decreased [Unknown]
  - Diarrhoea [Unknown]
